FAERS Safety Report 10722534 (Version 1)
Quarter: 2015Q1

REPORT INFORMATION
  Report Type: Not Available
  Country: GB (occurrence: GB)
  Receive Date: 20150120
  Receipt Date: 20150120
  Transmission Date: 20150721
  Serious: Yes (Hospitalization)
  Sender: FDA-Public Use
  Company Number: GB-LUPIN PHARMACEUTICALS INC.-2015-00024

PATIENT
  Age: 73 Year
  Sex: Female

DRUGS (1)
  1. LEVETIRACETAM-LUPIN 500 MG FILM-COATED TABLETS [Suspect]
     Active Substance: LEVETIRACETAM
     Indication: EPILEPSY
     Route: 065

REACTIONS (3)
  - Epilepsy [Unknown]
  - Incorrect product storage [Unknown]
  - Drug dose omission [Unknown]
